FAERS Safety Report 5008290-1 (Version None)
Quarter: 2006Q2

REPORT INFORMATION
  Report Type: 
  Country: None (occurrence: None)
  Receive Date: 20060523
  Receipt Date: 20060208
  Transmission Date: 20061013
  Serious: Yes (Other)
  Sender: FDA-Public Use
  Company Number: DE-AMGEN-UK168199

PATIENT
  Sex: Female
  Weight: 44 kg

DRUGS (12)
  1. ARANESP [Suspect]
     Indication: RENAL TRANSPLANT
     Route: 065
     Dates: start: 20030502
  2. PREDNISOLONE [Concomitant]
     Route: 048
     Dates: start: 19990801
  3. SIROLIMUS [Concomitant]
     Route: 048
     Dates: start: 20020801
  4. TORSEMIDE [Concomitant]
     Route: 048
     Dates: start: 20020801
  5. AMLODIPINE [Concomitant]
     Route: 048
     Dates: start: 19990801
  6. DOXAZOSIN [Concomitant]
     Route: 048
     Dates: start: 20000101
  7. EPROSARTAN [Concomitant]
     Route: 048
     Dates: start: 20020701
  8. LEVOTHYROXINE SODIUM [Concomitant]
     Route: 048
     Dates: start: 19990801
  9. IRON SULFATETHIAMIN COMPOUND TAB [Concomitant]
     Route: 048
  10. PANTOPRAZOLE [Concomitant]
     Route: 048
     Dates: start: 20050701
  11. FLUVASTATIN [Concomitant]
     Route: 048
     Dates: start: 20020701
  12. MYCOPHENOLATE MOFETIL [Concomitant]
     Route: 048
     Dates: start: 19990801

REACTIONS (2)
  - ANAEMIA [None]
  - APLASIA PURE RED CELL [None]
